FAERS Safety Report 6743186-6 (Version None)
Quarter: 2010Q2

REPORT INFORMATION
  Report Type: 
  Country: None (occurrence: None)
  Receive Date: 20100527
  Receipt Date: 20100524
  Transmission Date: 20101027
  Serious: Yes (Hospitalization, Other)
  Sender: FDA-Public Use
  Company Number: DK-ROXANE LABORATORIES, INC.-2010-RO-00625RO

PATIENT
  Age: 18 Year
  Sex: Female

DRUGS (10)
  1. FUROSEMIDE [Suspect]
     Route: 042
  2. FUROSEMIDE [Suspect]
     Route: 042
  3. CLARITHROMYCIN [Suspect]
     Indication: MYCOPLASMA INFECTION
     Route: 042
  4. MEROPENEM [Suspect]
     Indication: MYCOPLASMA INFECTION
  5. REMIFENTANIL [Suspect]
     Route: 042
  6. ACTRAPID [Suspect]
     Route: 042
  7. METHYLPREDNISOLONE [Suspect]
     Route: 042
  8. ESOMEPRAZOLE MAGNESIUM [Suspect]
  9. PARACETAMOL [Suspect]
  10. DALTEPARIN SODIUM [Suspect]

REACTIONS (3)
  - BLISTER [None]
  - HEART RATE INCREASED [None]
  - HYPERTHERMIA [None]
